FAERS Safety Report 8803382 (Version 2)
Quarter: 2014Q2

REPORT INFORMATION
  Report Type: Spontaneous
  Country: FR (occurrence: FR)
  Receive Date: 20120924
  Receipt Date: 20131017
  Transmission Date: 20141212
  Serious: Yes (Other)
  Sender: FDA-Public Use
  Company Number: FR-PFIZER INC-FR-WYE-G04428809

PATIENT
  Age: 16 Year
  Sex: Male

DRUGS (30)
  1. TAZOCILLINE [Suspect]
     Indication: PYREXIA
     Dosage: UNKNOWN
     Route: 042
     Dates: start: 20090725, end: 20090806
  2. ARACYTINE [Suspect]
     Indication: ACUTE MYELOID LEUKAEMIA
     Dosage: CONTINUOUS INFUSION: 340 MG TOTAL DAILY (200 MG/M^2)
     Route: 042
     Dates: start: 20090726, end: 20090801
  3. ARACYTINE [Suspect]
     Dosage: 30 MG, 1X/DAY
     Route: 037
     Dates: start: 20090726, end: 20090726
  4. ARACYTINE [Suspect]
     Dosage: 30 MG, 1X/DAY
     Route: 037
     Dates: start: 20090803, end: 20090803
  5. METHOTREXATE [Suspect]
     Indication: ACUTE MYELOID LEUKAEMIA
     Dosage: 15 MG, 1X/DAY
     Route: 037
     Dates: start: 20090726, end: 20090726
  6. METHOTREXATE [Suspect]
     Dosage: 15 MG, 1X/DAY
     Route: 037
     Dates: start: 20090803, end: 20090803
  7. MITOXANTRONE [Suspect]
     Indication: ACUTE MYELOID LEUKAEMIA
     Dosage: 20.4 MG, 1X/DAY
     Route: 042
     Dates: start: 20090726, end: 20090730
  8. METHYLPREDNISOLONE ACETATE [Suspect]
     Indication: ACUTE MYELOID LEUKAEMIA
     Dosage: 20 MG, 1X/DAY
     Route: 037
     Dates: start: 20090726, end: 20090726
  9. METHYLPREDNISOLONE ACETATE [Suspect]
     Dosage: 20 MG, 1X/DAY
     Route: 037
     Dates: start: 20090803, end: 20090803
  10. TARGOCID [Suspect]
     Indication: PYREXIA
     Dosage: 600 MG, 1X/DAY
     Route: 042
     Dates: start: 20090725
  11. CANCIDAS [Suspect]
     Indication: PYREXIA
     Dosage: 70 MG, 1X/DAY
     Route: 042
     Dates: start: 20090726, end: 20090809
  12. FUNGIZONE [Suspect]
     Indication: INFECTION
     Dosage: 500 MG, 3X/DAY
     Route: 048
     Dates: start: 20090728
  13. INEXIUM [Suspect]
     Dosage: 40 MG, 1X/DAY
     Route: 042
     Dates: start: 20090728
  14. TIORFAN [Suspect]
     Dosage: 100 MG, 3X/DAY
     Route: 048
     Dates: start: 20090731
  15. METRONIDAZOLE [Suspect]
     Indication: INFECTION
     Dosage: 500 MG, 3X/DAY
     Route: 042
     Dates: start: 20090803, end: 20090806
  16. BACTRIM [Suspect]
     Indication: ANTIFUNGAL PROPHYLAXIS
     Dosage: 800 MG, 1X/DAY
     Route: 048
     Dates: start: 20090804
  17. ACICLOVIR [Suspect]
     Indication: PYREXIA
     Dosage: 500 MG, 3X/DAY
     Route: 042
     Dates: start: 20090805
  18. TIENAM [Suspect]
     Indication: PYREXIA
     Dosage: 500 MG, 4X/DAY
     Route: 042
     Dates: start: 20090807, end: 20090816
  19. CONTRAMAL [Suspect]
     Indication: PAIN
     Dosage: 50 MG, 6X/DAY
     Route: 042
     Dates: start: 20090807, end: 20090809
  20. GENTAMICIN SULFATE [Suspect]
     Indication: PYREXIA
     Dosage: 100 MG, 3X/DAY
     Route: 042
     Dates: start: 20090728
  21. CIPROFLOXACIN [Suspect]
     Indication: PYREXIA
     Dosage: 400 MG, 3X/DAY
     Route: 042
     Dates: start: 20090802
  22. PLITICAN [Concomitant]
     Indication: NAUSEA
     Dosage: 50 MG, 4X/DAY
     Route: 042
     Dates: start: 20090727, end: 20090803
  23. AMIKACIN [Concomitant]
     Indication: PYREXIA
     Dosage: 950 MG, 1X/DAY
     Route: 042
     Dates: start: 20090725, end: 20090726
  24. PULMICORT [Concomitant]
     Dosage: 1 MG, 1X/DAY
     Route: 055
     Dates: start: 20090730, end: 20090731
  25. TRANXENE [Concomitant]
     Indication: ANXIETY
     Dosage: 20 MG, 1X/DAY
     Route: 042
     Dates: start: 20090804
  26. NALBUPHINE [Concomitant]
     Indication: PAIN
     Dosage: 10 MG, SIX TIME A DAY
     Route: 042
     Dates: start: 20090730, end: 20090803
  27. ONDANSETRON [Concomitant]
     Indication: NAUSEA
     Dosage: 8 MG, 2X/DAY
     Route: 042
     Dates: start: 20090726
  28. EFFERALGAN [Concomitant]
     Indication: PAIN
     Dosage: 15 MG/KG, 1X/DAY
     Route: 048
     Dates: start: 20090725
  29. SPASFON [Concomitant]
     Dosage: 80 MG, 3X/DAY
     Route: 042
     Dates: start: 20090731, end: 20090802
  30. FASTURTEC [Concomitant]
     Dosage: 7.5 MG, 1X/DAY
     Route: 042
     Dates: start: 20090725, end: 20090727

REACTIONS (9)
  - Convulsion [Recovered/Resolved]
  - Headache [Recovered/Resolved]
  - Clumsiness [Recovered/Resolved]
  - Dysarthria [Recovered/Resolved]
  - VIIth nerve paralysis [Recovered/Resolved]
  - Hemiplegia [Recovered/Resolved]
  - Chills [Recovered/Resolved]
  - Condition aggravated [Recovered/Resolved]
  - Cytotoxic oedema [Recovered/Resolved]
